FAERS Safety Report 21995373 (Version 1)
Quarter: 2023Q1

REPORT INFORMATION
  Report Type: Spontaneous
  Country: US (occurrence: None)
  Receive Date: 20230214
  Receipt Date: 20230214
  Transmission Date: 20230417
  Serious: No
  Sender: FDA-Public Use
  Company Number: None

PATIENT
  Sex: Male

DRUGS (10)
  1. LENVIMA [Suspect]
     Active Substance: LENVATINIB
     Indication: Thyroid cancer
     Dosage: OTHER FREQUENCY : QD 4 WKS, 1 WK OFF;?
     Route: 048
     Dates: start: 20210501
  2. TRULICITY [Concomitant]
     Active Substance: DULAGLUTIDE
  3. METFORMIN [Concomitant]
     Active Substance: METFORMIN HYDROCHLORIDE
  4. LIPITOR [Concomitant]
     Active Substance: ATORVASTATIN CALCIUM
  5. LOSARTAN [Concomitant]
     Active Substance: LOSARTAN
  6. NORVASC [Concomitant]
     Active Substance: AMLODIPINE BESYLATE
  7. LEVOTHYROXINE [Concomitant]
     Active Substance: LEVOTHYROXINE
  8. FARXIGA [Concomitant]
     Active Substance: DAPAGLIFLOZIN PROPANEDIOL
  9. FERROUS SULFATE [Concomitant]
     Active Substance: FERROUS SULFATE
  10. Caclium citrate [Concomitant]

REACTIONS (4)
  - Rash [None]
  - Oropharyngeal pain [None]
  - Hypertension [None]
  - Therapy change [None]
